FAERS Safety Report 4555723-0 (Version None)
Quarter: 2005Q1

REPORT INFORMATION
  Report Type: 
  Country: None (occurrence: None)
  Receive Date: 20050112
  Receipt Date: 20040116
  Transmission Date: 20050727
  Serious: Yes (Hospitalization)
  Sender: FDA-Public Use
  Company Number: 200411068BWH

PATIENT
  Age: 76 Year
  Sex: Female
  Weight: 70.7611 kg

DRUGS (6)
  1. CIPRO [Suspect]
     Indication: DIVERTICULITIS
     Dosage: 1000 MG, TOTAL DAILY, ORAL
     Route: 048
     Dates: start: 20040114, end: 20040115
  2. FLAGYL [Concomitant]
  3. MAXZIDE [Concomitant]
  4. SINGULAIR [Concomitant]
  5. PREMARIN [Concomitant]
  6. ENALAPRIL [Concomitant]

REACTIONS (2)
  - ANGIONEUROTIC OEDEMA [None]
  - RESPIRATORY DISTRESS [None]
